FAERS Safety Report 11541330 (Version 1)
Quarter: 2015Q3

REPORT INFORMATION
  Report Type: Spontaneous
  Country: IN (occurrence: IN)
  Receive Date: 20150923
  Receipt Date: 20150923
  Transmission Date: 20151125
  Serious: Yes (Death)
  Sender: FDA-Public Use
  Company Number: IN-PFIZER INC-2015315981

PATIENT
  Age: 43 Year
  Sex: Female

DRUGS (1)
  1. ETHINYLESTRADIOL/LEVONORGESTREL [Suspect]
     Active Substance: ETHINYL ESTRADIOL\LEVONORGESTREL
     Indication: MENORRHAGIA
     Dosage: UNK (ETHINYLOESTRADIOL 0.03 MG + LEVONORGESTREL 0.15 MG)

REACTIONS (3)
  - Angiosarcoma [Fatal]
  - Hepatic failure [Fatal]
  - Product use issue [Unknown]
